FAERS Safety Report 15920655 (Version 1)
Quarter: 2019Q1

REPORT INFORMATION
  Report Type: Spontaneous
  Country: FR (occurrence: FR)
  Receive Date: 20190205
  Receipt Date: 20190205
  Transmission Date: 20190417
  Serious: Yes (Other)
  Sender: FDA-Public Use
  Company Number: FR-MYLANLABS-2019M1009662

PATIENT
  Age: 74 Year
  Sex: Female
  Weight: 64 kg

DRUGS (6)
  1. CYCLOPHOSPHAMIDE. [Suspect]
     Active Substance: CYCLOPHOSPHAMIDE
     Indication: DIFFUSE LARGE B-CELL LYMPHOMA
     Dosage: 750 MILLIGRAM/SQ. METER, QD
     Route: 065
     Dates: start: 20170308, end: 20170807
  2. PREDNISONE. [Suspect]
     Active Substance: PREDNISONE
     Indication: DIFFUSE LARGE B-CELL LYMPHOMA
     Dosage: 40 MILLIGRAM/SQ. METER, QD
     Route: 065
     Dates: start: 20170308, end: 20170807
  3. DOXORUBICIN [Suspect]
     Active Substance: DOXORUBICIN
     Indication: DIFFUSE LARGE B-CELL LYMPHOMA
     Dosage: 50 MILLIGRAM/SQ. METER, QD
     Route: 065
     Dates: start: 20170308, end: 20170807
  4. RITUXIMAB. [Suspect]
     Active Substance: RITUXIMAB
     Indication: DIFFUSE LARGE B-CELL LYMPHOMA
     Dosage: 375 MILLIGRAM/SQ. METER
     Route: 042
     Dates: start: 20170308, end: 20170807
  5. TAZEMETOSTAT [Suspect]
     Active Substance: TAZEMETOSTAT
     Indication: DIFFUSE LARGE B-CELL LYMPHOMA
     Dosage: 800 MILLIGRAM, QD
     Route: 048
     Dates: start: 20170310, end: 20170824
  6. VINCRISTINE [Suspect]
     Active Substance: VINCRISTINE
     Indication: DIFFUSE LARGE B-CELL LYMPHOMA
     Dosage: 1.4 MILLIGRAM/SQ. METER, QD
     Route: 065
     Dates: start: 20170308, end: 20170807

REACTIONS (1)
  - Myelodysplastic syndrome [Not Recovered/Not Resolved]

NARRATIVE: CASE EVENT DATE: 20170907
